FAERS Safety Report 17260909 (Version 3)
Quarter: 2020Q2

REPORT INFORMATION
  Report Type: Spontaneous
  Country: US (occurrence: US)
  Receive Date: 20200113
  Receipt Date: 20200611
  Transmission Date: 20200713
  Serious: No
  Sender: FDA-Public Use
  Company Number: US-BIOGEN-2020BI00826471

PATIENT
  Sex: Female
  Weight: 106.69 kg

DRUGS (6)
  1. PROBIOTIC [Concomitant]
     Active Substance: PROBIOTICS NOS
     Route: 065
  2. COLLAGEN [Concomitant]
     Active Substance: COLLAGEN
     Route: 065
  3. MAGNA [Concomitant]
     Route: 065
  4. KRILL OIL [Concomitant]
     Active Substance: DIETARY SUPPLEMENT\KRILL OIL
     Route: 065
  5. TECFIDERA [Suspect]
     Active Substance: DIMETHYL FUMARATE
     Indication: MULTIPLE SCLEROSIS
     Route: 048
  6. EDARBYCLOR [Concomitant]
     Active Substance: AZILSARTAN KAMEDOXOMIL\CHLORTHALIDONE
     Route: 065

REACTIONS (2)
  - Weight increased [Unknown]
  - Urine odour abnormal [Unknown]
